FAERS Safety Report 6096588-8 (Version None)
Quarter: 2009Q1

REPORT INFORMATION
  Report Type: 
  Country: None (occurrence: None)
  Receive Date: 20090225
  Receipt Date: 20090209
  Transmission Date: 20090719
  Serious: Yes (Death)
  Sender: FDA-Public Use
  Company Number: 000380

PATIENT
  Sex: Male

DRUGS (1)
  1. LACOSAMIDE [Suspect]

REACTIONS (1)
  - LUNG DISORDER [None]
